FAERS Safety Report 12375201 (Version 1)
Quarter: 2016Q2

REPORT INFORMATION
  Report Type: Spontaneous
  Country: US (occurrence: None)
  Receive Date: 20160516
  Receipt Date: 20160516
  Transmission Date: 20160815
  Serious: Yes (Hospitalization, Disabling)
  Sender: FDA-Public Use
  Company Number: None

PATIENT
  Age: 53 Year
  Sex: Female
  Weight: 81.65 kg

DRUGS (20)
  1. LEVOTHYROXIN [Concomitant]
     Active Substance: LEVOTHYROXINE
  2. SINGULAIR [Concomitant]
     Active Substance: MONTELUKAST SODIUM
  3. PROBIOTIC [Concomitant]
     Active Substance: PROBIOTICS NOS
  4. SILY MARIN [Concomitant]
  5. LEVAQUIN [Suspect]
     Active Substance: LEVOFLOXACIN
     Indication: PNEUMONIA
     Route: 042
  6. EXCEDRIN [Concomitant]
     Active Substance: ACETAMINOPHEN\ASPIRIN\CAFFEINE
  7. NIACIN. [Concomitant]
     Active Substance: NIACIN
  8. VITAMIN D3 [Concomitant]
     Active Substance: CHOLECALCIFEROL
  9. ALBUTEROL. [Concomitant]
     Active Substance: ALBUTEROL
  10. TYLENOL [Concomitant]
     Active Substance: ACETAMINOPHEN
  11. NEBULIZER [Concomitant]
     Active Substance: DEVICE
  12. ALLERGRA [Concomitant]
  13. ZANTAC [Concomitant]
     Active Substance: RANITIDINE HYDROCHLORIDE
  14. ALPHA LIPOIC ACID [Concomitant]
     Active Substance: .ALPHA.-LIPOIC ACID
  15. FISH OIL [Concomitant]
     Active Substance: FISH OIL
  16. MULITI VITAMIN [Concomitant]
  17. SYMBICORT [Concomitant]
     Active Substance: BUDESONIDE\FORMOTEROL FUMARATE DIHYDRATE
  18. IBUPROFEN. [Concomitant]
     Active Substance: IBUPROFEN
  19. PSEUDOFED [Concomitant]
     Active Substance: PSEUDOEPHEDRINE HYDROCHLORIDE
  20. DGL [Concomitant]

REACTIONS (8)
  - Impaired healing [None]
  - Anxiety [None]
  - Pallor [None]
  - Vomiting [None]
  - Paraesthesia [None]
  - Infusion related reaction [None]
  - Nausea [None]
  - Dizziness [None]

NARRATIVE: CASE EVENT DATE: 20110313
